FAERS Safety Report 4763363-3 (Version None)
Quarter: 2005Q3

REPORT INFORMATION
  Report Type: 
  Country: None (occurrence: None)
  Receive Date: 20050826
  Receipt Date: 20050324
  Transmission Date: 20060218
  Serious: Yes (Other)
  Sender: FDA-Public Use
  Company Number: USA-2004-0015728

PATIENT
  Age: 38 Year
  Sex: Male

DRUGS (13)
  1. OXYCONTIN [Suspect]
     Indication: PAIN
     Dosage: 80 MG, SEE TEXT
     Route: 048
  2. XANAX [Concomitant]
  3. AMBIEN [Concomitant]
  4. ELAVIL [Concomitant]
  5. LORTAB [Concomitant]
  6. ZOLOFT [Concomitant]
  7. SINGULAIR [Concomitant]
  8. FENTANYL [Concomitant]
  9. FLONASE [Concomitant]
  10. PREVACID [Concomitant]
  11. ALBUTEROL [Concomitant]
  12. CITALOPRAM [Concomitant]
  13. VALIUM [Concomitant]

REACTIONS (30)
  - ABDOMINAL PAIN UPPER [None]
  - ANXIETY [None]
  - ARTHRALGIA [None]
  - ARTHRITIS [None]
  - CHEST PAIN [None]
  - CHILLS [None]
  - CONDITION AGGRAVATED [None]
  - CONSTIPATION [None]
  - DEPRESSION [None]
  - DRUG DEPENDENCE [None]
  - DRUG TOLERANCE [None]
  - DRUG WITHDRAWAL SYNDROME [None]
  - DYSPEPSIA [None]
  - DYSPNOEA [None]
  - FATIGUE [None]
  - HALLUCINATION [None]
  - HEADACHE [None]
  - HOT FLUSH [None]
  - LOSS OF CONSCIOUSNESS [None]
  - MOOD SWINGS [None]
  - NECK PAIN [None]
  - OBSESSIVE-COMPULSIVE DISORDER [None]
  - PAIN [None]
  - PALPITATIONS [None]
  - PARANOIA [None]
  - SWELLING [None]
  - TREMOR [None]
  - VOMITING [None]
  - WEIGHT DECREASED [None]
  - WHEEZING [None]
